FAERS Safety Report 5155224-5 (Version None)
Quarter: 2006Q4

REPORT INFORMATION
  Report Type: 
  Country: None (occurrence: None)
  Receive Date: 20061121
  Receipt Date: 20061113
  Transmission Date: 20070319
  Serious: Yes (Other)
  Sender: FDA-Public Use
  Company Number: GB-JNJFOC-20061007014

PATIENT
  Sex: Female

DRUGS (5)
  1. REMICADE [Suspect]
     Indication: RHEUMATOID ARTHRITIS
     Dosage: 300-320 MG. 32 INFUSIONS IN TOTAL
     Route: 042
  2. METHOTREXATE [Concomitant]
     Route: 065
  3. LEFLUNOMIDE [Concomitant]
     Indication: LIVER FUNCTION TEST ABNORMAL
     Route: 065
  4. AZATHIOPRINE [Concomitant]
     Indication: LIVER FUNCTION TEST ABNORMAL
     Route: 065
  5. SULFASALAZINE [Concomitant]
     Route: 065

REACTIONS (1)
  - LYMPHOMA [None]
